FAERS Safety Report 7744972 (Version 2)
Quarter: 2013Q2

REPORT INFORMATION
  Report Type: Spontaneous
  Country: US (occurrence: US)
  Receive Date: 20101231
  Receipt Date: 20130416
  Transmission Date: 20140414
  Serious: Yes (Hospitalization)
  Sender: FDA-Public Use
  Company Number: US-RANBAXY-2010US-40663

PATIENT
  Age: 22 Year
  Sex: Female

DRUGS (1)
  1. TOPIRAMATE [Suspect]
     Indication: MIGRAINE
     Dosage: 2 TABLETS OF 200MG
     Route: 048

REACTIONS (4)
  - Confusional state [Recovered/Resolved]
  - Metabolic acidosis [Recovered/Resolved]
  - Hypertension [Recovered/Resolved]
  - Off label use [Unknown]
